FAERS Safety Report 5372432-9 (Version None)
Quarter: 2007Q2

REPORT INFORMATION
  Report Type: 
  Country: None (occurrence: None)
  Receive Date: 20070627
  Receipt Date: 20070620
  Transmission Date: 20071010
  Serious: Yes (Hospitalization)
  Sender: FDA-Public Use
  Company Number: FR-BRISTOL-MYERS SQUIBB COMPANY-13826698

PATIENT
  Age: 10 Year
  Sex: Female
  Weight: 31 kg

DRUGS (4)
  1. NIFLURIL [Suspect]
     Route: 054
     Dates: start: 20070607
  2. AMOXICILLIN [Suspect]
  3. DOLIPRANE [Suspect]
  4. ADVIL [Concomitant]

REACTIONS (13)
  - ASTHENIA [None]
  - BLOOD CREATININE DECREASED [None]
  - BLOOD CULTURE POSITIVE [None]
  - BLOOD PRESSURE DIASTOLIC DECREASED [None]
  - CONDITION AGGRAVATED [None]
  - DRUG INEFFECTIVE [None]
  - GAIT DISTURBANCE [None]
  - HAEMOGLOBIN DECREASED [None]
  - HEART RATE INCREASED [None]
  - LABORATORY TEST ABNORMAL [None]
  - OSTEOMYELITIS [None]
  - RED BLOOD CELL COUNT DECREASED [None]
  - STAPHYLOCOCCAL INFECTION [None]
